FAERS Safety Report 9797113 (Version 1)
Quarter: 2014Q1

REPORT INFORMATION
  Report Type: Spontaneous
  Country: MX (occurrence: MX)
  Receive Date: 20140106
  Receipt Date: 20140106
  Transmission Date: 20141002
  Serious: Yes (Other)
  Sender: FDA-Public Use
  Company Number: PHHY2013MX150346

PATIENT
  Age: 81 Year
  Sex: Female

DRUGS (6)
  1. TEGRETOL [Suspect]
     Indication: THYROID DISORDER
     Dosage: 1 DF (200 MG), DAILY
     Route: 048
  2. TEGRETOL [Suspect]
     Indication: OFF LABEL USE
  3. HYDERGINA [Suspect]
     Indication: BRAIN HYPOXIA
     Dosage: 1 IN MORNING AND 1 IN AFTERNOON (1.5 MG)
     Route: 048
     Dates: start: 201310
  4. HYDERGINA [Suspect]
     Dosage: 1/3 IN MORNING AND 1/3 IN AFTERNOON (4.5 MG)
     Route: 048
     Dates: start: 201312
  5. EUTIROX [Concomitant]
     Indication: THYROID DISORDER
     Dosage: UNK UKN, UNK
     Dates: start: 2003
  6. STUGERON [Concomitant]
     Indication: BRAIN HYPOXIA
     Dosage: UNK UKN, UNK
     Dates: start: 201310, end: 201312

REACTIONS (7)
  - Arrhythmia [Recovered/Resolved]
  - Blood potassium abnormal [Recovered/Resolved]
  - Disorientation [Recovering/Resolving]
  - Confusional state [Recovering/Resolving]
  - Memory impairment [Recovering/Resolving]
  - Somnolence [Recovering/Resolving]
  - Speech disorder [Recovering/Resolving]
